FAERS Safety Report 15590189 (Version 3)
Quarter: 2019Q1

REPORT INFORMATION
  Report Type: Report from Study
  Country: CA (occurrence: CA)
  Receive Date: 20181106
  Receipt Date: 20190109
  Transmission Date: 20190417
  Serious: Yes (Other)
  Sender: FDA-Public Use
  Company Number: CA-GLAXOSMITHKLINE-CA2018GSK200706

PATIENT
  Sex: Male

DRUGS (2)
  1. MEPOLIZUMAB [Suspect]
     Active Substance: MEPOLIZUMAB
     Indication: ASTHMA
     Dosage: 100 MG, Z,MONTHLY
     Route: 042
     Dates: start: 20180614
  2. MEPOLIZUMAB [Suspect]
     Active Substance: MEPOLIZUMAB
     Dosage: 100 MG, Z(MONTHLY)
     Route: 042
     Dates: start: 20180614

REACTIONS (7)
  - Joint swelling [Recovering/Resolving]
  - Localised oedema [Recovering/Resolving]
  - Erythema [Recovering/Resolving]
  - Oedema peripheral [Unknown]
  - Cellulitis [Recovering/Resolving]
  - Arthritis infective [Recovering/Resolving]
  - Drug effect incomplete [Unknown]
